FAERS Safety Report 11613405 (Version 2)
Quarter: 2015Q4

REPORT INFORMATION
  Report Type: Spontaneous
  Country: BE (occurrence: BE)
  Receive Date: 20151008
  Receipt Date: 20151010
  Transmission Date: 20160304
  Serious: Yes (Death)
  Sender: FDA-Public Use
  Company Number: PHHY2015BE120742

PATIENT
  Age: 90 Year
  Sex: Male

DRUGS (2)
  1. SERETIDE [Interacting]
     Active Substance: FLUTICASONE FUROATE\SALMETEROL XINAFOATE
     Indication: CHRONIC OBSTRUCTIVE PULMONARY DISEASE
     Dosage: UNK
     Route: 055
     Dates: start: 201509
  2. ULTIBRO BREEZHALER [Suspect]
     Active Substance: GLYCOPYRRONIUM\INDACATEROL
     Indication: CHRONIC OBSTRUCTIVE PULMONARY DISEASE
     Dosage: UNK
     Route: 055
     Dates: start: 201509

REACTIONS (3)
  - Tachycardia [Unknown]
  - Cardiac failure [Fatal]
  - Drug interaction [Unknown]

NARRATIVE: CASE EVENT DATE: 201509
